FAERS Safety Report 6135982-3 (Version None)
Quarter: 2009Q1

REPORT INFORMATION
  Report Type: 
  Country: None (occurrence: None)
  Receive Date: 20090329
  Receipt Date: 20081106
  Transmission Date: 20090719
  Serious: No
  Sender: FDA-Public Use
  Company Number: US-BAUSCH-2008BL004751

PATIENT
  Age: 56 Year
  Sex: Male

DRUGS (1)
  1. LOTEMAX [Suspect]
     Indication: CORNEAL DYSTROPHY
     Route: 047
     Dates: start: 20081031, end: 20081106

REACTIONS (3)
  - HYPOACUSIS [None]
  - RHINORRHOEA [None]
  - TINNITUS [None]
